FAERS Safety Report 13537200 (Version 3)
Quarter: 2017Q3

REPORT INFORMATION
  Report Type: Report from Study
  Country: CO (occurrence: CO)
  Receive Date: 20170511
  Receipt Date: 20170720
  Transmission Date: 20171127
  Serious: Yes (Hospitalization, Other)
  Sender: FDA-Public Use
  Company Number: PHHY2015CO136213

PATIENT
  Age: 39 Year
  Sex: Female
  Weight: 80 kg

DRUGS (2)
  1. REVOLADE [Suspect]
     Active Substance: ELTROMBOPAG
     Dosage: 1 DF, QOD
     Route: 048
     Dates: start: 20170606
  2. REVOLADE [Suspect]
     Active Substance: ELTROMBOPAG
     Indication: IMMUNE THROMBOCYTOPENIC PURPURA
     Dosage: 2 DF (2 TABLET OF 25 MG), QOD
     Route: 048
     Dates: start: 20131211

REACTIONS (7)
  - Fatigue [Unknown]
  - Influenza [Unknown]
  - Headache [Recovered/Resolved]
  - Platelet count abnormal [Unknown]
  - Platelet count decreased [Unknown]
  - Psychiatric symptom [Recovered/Resolved]
  - Platelet count increased [Unknown]

NARRATIVE: CASE EVENT DATE: 20151121
